FAERS Safety Report 7751060-1 (Version None)
Quarter: 2011Q3

REPORT INFORMATION
  Report Type: 
  Country: None (occurrence: None)
  Receive Date: 20110914
  Receipt Date: 20110123
  Transmission Date: 20111222
  Serious: No
  Sender: FDA-Public Use
  Company Number: US-MYLANLABS-2011S1001877

PATIENT
  Age: 20 Year
  Sex: Female

DRUGS (2)
  1. SPIRONOLACTONE [Suspect]
     Indication: ACNE
     Route: 048
     Dates: start: 20101201
  2. ACEON [Concomitant]
     Indication: CONTRACEPTION

REACTIONS (2)
  - CYANOSIS [None]
  - CHILLS [None]
